FAERS Safety Report 15640530 (Version 2)
Quarter: 2018Q4

REPORT INFORMATION
  Report Type: Spontaneous
  Country: US (occurrence: US)
  Receive Date: 20181120
  Receipt Date: 20181214
  Transmission Date: 20190205
  Serious: No
  Sender: FDA-Public Use
  Company Number: US-ASTRAZENECA-2018SF52774

PATIENT
  Age: 79 Year
  Sex: Male
  Weight: 88.5 kg

DRUGS (4)
  1. RHINOCORT [Suspect]
     Active Substance: BUDESONIDE
     Indication: NASOPHARYNGITIS
     Dosage: 2.0GTT ONCE/SINGLE ADMINISTRATION
     Route: 045
     Dates: start: 20181101, end: 20181101
  2. RHINOCORT [Suspect]
     Active Substance: BUDESONIDE
     Indication: NASOPHARYNGITIS
     Dosage: 2.0GTT ONCE/SINGLE ADMINISTRATION
     Route: 045
     Dates: start: 20181031
  3. RHINOCORT [Suspect]
     Active Substance: BUDESONIDE
     Indication: COUGH
     Dosage: 2.0GTT ONCE/SINGLE ADMINISTRATION
     Route: 045
     Dates: start: 20181031
  4. RHINOCORT [Suspect]
     Active Substance: BUDESONIDE
     Indication: COUGH
     Dosage: 2.0GTT ONCE/SINGLE ADMINISTRATION
     Route: 045
     Dates: start: 20181101, end: 20181101

REACTIONS (4)
  - Product use in unapproved indication [Unknown]
  - Ocular hyperaemia [Recovered/Resolved]
  - Off label use [Unknown]
  - Lacrimation increased [Unknown]

NARRATIVE: CASE EVENT DATE: 20181031
